FAERS Safety Report 12919601 (Version 1)
Quarter: 2016Q4

REPORT INFORMATION
  Report Type: Spontaneous
  Country: US (occurrence: US)
  Receive Date: 20161103
  Receipt Date: 20161103
  Transmission Date: 20170207
  Serious: No
  Sender: FDA-Public Use
  Company Number: None

PATIENT
  Age: 61 Year
  Sex: Male

DRUGS (1)
  1. NEXAVAR [Suspect]
     Active Substance: SORAFENIB
     Indication: HEPATIC CANCER
     Dosage: 2 TABLETS (400MG) TWICE DAILY BY MOUTH
     Route: 048
     Dates: start: 20160604

REACTIONS (3)
  - Skin exfoliation [None]
  - Erythema [None]
  - Testicular disorder [None]

NARRATIVE: CASE EVENT DATE: 20161101
